FAERS Safety Report 22068777 (Version 1)
Quarter: 2023Q1

REPORT INFORMATION
  Report Type: Spontaneous
  Country: US (occurrence: US)
  Receive Date: 20230307
  Receipt Date: 20230307
  Transmission Date: 20230418
  Serious: No
  Sender: FDA-Public Use
  Company Number: US-AMNEAL PHARMACEUTICALS-2022-AMRX-02914

PATIENT
  Sex: Female
  Weight: 59.864 kg

DRUGS (1)
  1. RYTARY [Suspect]
     Active Substance: CARBIDOPA\LEVODOPA
     Indication: Parkinson^s disease
     Dosage: 6 CAPSULES, (48.75) BID
     Route: 048
     Dates: start: 20220818

REACTIONS (2)
  - Drug ineffective [Recovering/Resolving]
  - Dry mouth [Unknown]
